FAERS Safety Report 24525539 (Version 1)
Quarter: 2024Q4

REPORT INFORMATION
  Report Type: Spontaneous
  Country: FR (occurrence: FR)
  Receive Date: 20241020
  Receipt Date: 20241020
  Transmission Date: 20250115
  Serious: Yes (Other)
  Sender: AUROBINDO
  Company Number: FR-AFSSAPS-PB2024001093

PATIENT
  Age: 88 Year
  Sex: Female
  Weight: 64.1 kg

DRUGS (2)
  1. ERTAPENEM [Suspect]
     Active Substance: ERTAPENEM
     Indication: Escherichia sepsis
     Dosage: 1 GRAM, ONCE A DAY
     Route: 042
     Dates: start: 20240921, end: 20240926
  2. GENTAMICIN [Concomitant]
     Active Substance: GENTAMICIN
     Indication: Antibiotic prophylaxis
     Dosage: 1 DOSAGE FORM
     Route: 042
     Dates: start: 20240925

REACTIONS (1)
  - Neurological symptom [Recovering/Resolving]

NARRATIVE: CASE EVENT DATE: 20240926
